FAERS Safety Report 9871326 (Version 1)
Quarter: 2014Q1

REPORT INFORMATION
  Report Type: Spontaneous
  Country: US (occurrence: None)
  Receive Date: 20140205
  Receipt Date: 20140205
  Transmission Date: 20141002
  Serious: Yes (Death)
  Sender: FDA-Public Use
  Company Number: None

PATIENT
  Age: 42 Year
  Sex: Male
  Weight: 111.13 kg

DRUGS (1)
  1. AMBIEN [Suspect]
     Indication: SLEEP DISORDER

REACTIONS (2)
  - Somnambulism [None]
  - Road traffic accident [None]
